FAERS Safety Report 24888726 (Version 1)
Quarter: 2025Q1

REPORT INFORMATION
  Report Type: Spontaneous
  Country: US (occurrence: None)
  Receive Date: 20250124
  Receipt Date: 20250124
  Transmission Date: 20250408
  Serious: Yes (Hospitalization)
  Sender: FDA-CTU
  Company Number: None

PATIENT
  Sex: Female

DRUGS (2)
  1. RASUVO [Suspect]
     Active Substance: METHOTREXATE SODIUM
     Indication: Rheumatoid arthritis
     Dosage: 15MG WEEKLY SQ?
     Route: 058
     Dates: start: 202310
  2. MORPHINE [Suspect]
     Active Substance: MORPHINE

REACTIONS (4)
  - Arthralgia [None]
  - Joint swelling [None]
  - Drug hypersensitivity [None]
  - Spinal fracture [None]
